FAERS Safety Report 5451443-9 (Version None)
Quarter: 2007Q3

REPORT INFORMATION
  Report Type: 
  Country: None (occurrence: None)
  Receive Date: 20070911
  Receipt Date: 20070911
  Transmission Date: 20080115
  Serious: Yes (Disabling)
  Sender: FDA-Public Use
  Company Number: None

PATIENT
  Age: 32 Year
  Sex: Female
  Weight: 112.4921 kg

DRUGS (1)
  1. SULFAMETHOXAZOLE/TMP 1 PILL GENERIC [Suspect]
     Indication: SKIN INFECTION
     Dosage: 1 PILL TWICE DAILY PO
     Route: 048
     Dates: start: 20070831, end: 20070907

REACTIONS (2)
  - PARANOIA [None]
  - STEVENS-JOHNSON SYNDROME [None]
